FAERS Safety Report 18032397 (Version 2)
Quarter: 2020Q3

REPORT INFORMATION
  Report Type: Spontaneous
  Country: BE (occurrence: BE)
  Receive Date: 20200716
  Receipt Date: 20200727
  Transmission Date: 20201103
  Serious: Yes (Hospitalization, Other)
  Sender: FDA-Public Use
  Company Number: BE-PFIZER INC-2020269454

PATIENT
  Age: 53 Year
  Sex: Female
  Weight: 67 kg

DRUGS (2)
  1. CELEBREX [Suspect]
     Active Substance: CELECOXIB
     Indication: ARTHRITIS
     Dosage: 1 DF, 1X/DAY
     Route: 048
     Dates: start: 20200626, end: 20200628
  2. PANTOPRAZOLE [Concomitant]
     Active Substance: PANTOPRAZOLE
     Dosage: UNK

REACTIONS (1)
  - Epilepsy [Recovered/Resolved with Sequelae]

NARRATIVE: CASE EVENT DATE: 20200628
